FAERS Safety Report 10499301 (Version 1)
Quarter: 2014Q4

REPORT INFORMATION
  Report Type: Spontaneous
  Country: US (occurrence: US)
  Receive Date: 20141006
  Receipt Date: 20141006
  Transmission Date: 20150528
  Serious: No
  Sender: FDA-Public Use
  Company Number: US-009507513-1410USA000293

PATIENT
  Sex: Male

DRUGS (3)
  1. REYATAZ [Concomitant]
     Active Substance: ATAZANAVIR SULFATE
  2. ARBONNE INTELLIGENCE REJUVENATING CREAM [Concomitant]
  3. ISENTRESS [Suspect]
     Active Substance: RALTEGRAVIR POTASSIUM
     Indication: HIV INFECTION
     Dosage: 25 MG, BID
     Route: 048
     Dates: start: 2007

REACTIONS (4)
  - Insomnia [Not Recovered/Not Resolved]
  - Incorrect dose administered [Unknown]
  - Hypoaesthesia [Not Recovered/Not Resolved]
  - Incorrect drug dosage form administered [Unknown]

NARRATIVE: CASE EVENT DATE: 2007
